FAERS Safety Report 21888142 (Version 2)
Quarter: 2023Q1

REPORT INFORMATION
  Report Type: Report from Study
  Country: AU (occurrence: AU)
  Receive Date: 20230120
  Receipt Date: 20230201
  Transmission Date: 20230418
  Serious: Yes (Death)
  Sender: FDA-Public Use
  Company Number: AU-002147023-NVSC2023AU012703

PATIENT
  Sex: Male

DRUGS (1)
  1. GLIVEC [Suspect]
     Active Substance: IMATINIB MESYLATE
     Indication: Myeloproliferative neoplasm
     Dosage: 400 MG, QD (4 BOXES, 400 MG X 30 TABLETS)
     Route: 048

REACTIONS (2)
  - Second primary malignancy [Fatal]
  - Extramammary Paget^s disease [Fatal]
